FAERS Safety Report 6992395-X (Version None)
Quarter: 2010Q3

REPORT INFORMATION
  Report Type: 
  Country: None (occurrence: None)
  Receive Date: 20100917
  Receipt Date: 20100907
  Transmission Date: 20110219
  Serious: Yes (Hospitalization)
  Sender: FDA-Public Use
  Company Number: FR-PFIZER INC-2010112769

PATIENT
  Age: 94 Year
  Sex: Female

DRUGS (8)
  1. NEURONTIN [Suspect]
     Dosage: 1 DF DAILY
     Route: 048
  2. MUCOMYST [Suspect]
     Dosage: UNK
     Route: 048
     Dates: start: 20091014
  3. BUDESONIDE [Suspect]
     Indication: LUNG INFECTION
     Dosage: UNK
     Dates: start: 20091014
  4. ALPRAZOLAM [Suspect]
     Dosage: 0.25 MG, 3X/DAY
     Route: 048
     Dates: start: 20091014, end: 20091026
  5. NOCTAMID [Suspect]
     Dosage: 1 DF DAILY
     Route: 048
     Dates: end: 20091026
  6. RAVOTRIL [Suspect]
     Indication: LUNG INFECTION
     Dosage: 21 GTT DAILY
     Route: 048
     Dates: end: 20091026
  7. LASIX [Suspect]
     Indication: HYPERTENSION
     Dosage: 1 DF DAILY
     Route: 048
  8. ACETAMINOPHEN [Suspect]
     Dosage: UNK
     Route: 048

REACTIONS (2)
  - ABNORMAL BEHAVIOUR [None]
  - HALLUCINATION [None]
